FAERS Safety Report 9972860 (Version 1)
Quarter: 2014Q1

REPORT INFORMATION
  Report Type: Spontaneous
  Country: US (occurrence: US)
  Receive Date: 20140306
  Receipt Date: 20140306
  Transmission Date: 20141002
  Serious: No
  Sender: FDA-Public Use
  Company Number: US-TEVA-466914USA

PATIENT
  Sex: Female

DRUGS (1)
  1. CLARAVIS [Suspect]
     Dates: start: 20140121, end: 20140224

REACTIONS (4)
  - Headache [Unknown]
  - Vomiting [Unknown]
  - Nausea [Unknown]
  - Back pain [Unknown]
